FAERS Safety Report 6131372-8 (Version None)
Quarter: 2009Q1

REPORT INFORMATION
  Report Type: 
  Country: None (occurrence: None)
  Receive Date: 20090325
  Receipt Date: 20080523
  Transmission Date: 20090719
  Serious: Yes (Life-Threatening)
  Sender: FDA-Public Use
  Company Number: US-BRISTOL-MYERS SQUIBB COMPANY-14163885

PATIENT
  Age: 63 Year
  Sex: Male

DRUGS (4)
  1. ERBITUX [Suspect]
     Indication: COLORECTAL CANCER METASTATIC
     Dosage: 400 MG/M2 WEEKLY THEN 250 MG/M2
     Route: 042
     Dates: start: 20080423, end: 20080423
  2. SOLU-CORTEF [Concomitant]
     Indication: PREMEDICATION
     Route: 042
  3. BENADRYL [Concomitant]
     Indication: PREMEDICATION
     Route: 042
  4. ZANTAC [Concomitant]
     Indication: PREMEDICATION
     Route: 042

REACTIONS (4)
  - ACUTE MYOCARDIAL INFARCTION [None]
  - CARDIAC ARREST [None]
  - INFUSION RELATED REACTION [None]
  - RESPIRATORY FAILURE [None]
